FAERS Safety Report 23383913 (Version 3)
Quarter: 2024Q1

REPORT INFORMATION
  Report Type: Spontaneous
  Country: CA (occurrence: CA)
  Receive Date: 20240109
  Receipt Date: 20240306
  Transmission Date: 20240409
  Serious: Yes (Death)
  Sender: FDA-Public Use
  Company Number: CA-PFIZER INC-202200835956

PATIENT
  Age: 69 Year
  Sex: Female

DRUGS (9)
  1. RUXIENCE [Suspect]
     Active Substance: RITUXIMAB-PVVR
     Indication: Rheumatoid arthritis
     Dosage: INFUSION ON DAY 1 AND 2 WEEKS LATER ON DAY 15
     Route: 042
     Dates: start: 20220627
  2. RUXIENCE [Suspect]
     Active Substance: RITUXIMAB-PVVR
     Dosage: INFUSION ON DAY 1 AND 2 WEEKS LATER ON DAY 15
     Route: 042
     Dates: start: 20220712
  3. RUXIENCE [Suspect]
     Active Substance: RITUXIMAB-PVVR
     Dosage: INFUSION ON DAY 1 AND 2 WEEKS LATER ON DAY 15
     Route: 042
     Dates: start: 20221228
  4. RUXIENCE [Suspect]
     Active Substance: RITUXIMAB-PVVR
     Dosage: INFUSION ON DAY 1 AND 2 WEEKS LATER ON DAY 15
     Route: 042
     Dates: start: 20230112
  5. DILTIAZEM [Concomitant]
     Active Substance: DILTIAZEM
     Dosage: 1 DF
  6. PANTOPRAZOLE SODIUM [Concomitant]
     Active Substance: PANTOPRAZOLE SODIUM
     Dosage: 1 DF
  7. RAMIPRIL [Concomitant]
     Active Substance: RAMIPRIL
     Dosage: 1 DF
  8. LEVOTHYROXINE [Concomitant]
     Active Substance: LEVOTHYROXINE\LEVOTHYROXINE SODIUM
     Dosage: 1 DF
  9. MYCOPHENOLIC ACID [Concomitant]
     Active Substance: MYCOPHENOLIC ACID
     Dosage: 1 DF

REACTIONS (2)
  - Death [Fatal]
  - Diarrhoea [Recovering/Resolving]
